FAERS Safety Report 6602724-4 (Version None)
Quarter: 2010Q1

REPORT INFORMATION
  Report Type: 
  Country: None (occurrence: None)
  Receive Date: 20100218
  Receipt Date: 20100204
  Transmission Date: 20100710
  Serious: Yes (Death)
  Sender: FDA-Public Use
  Company Number: 2010AL000890

PATIENT
  Age: 93 Year
  Sex: Female

DRUGS (4)
  1. MELOXICAM [Suspect]
     Indication: OSTEOARTHRITIS
     Dosage: 15 MG; PO
     Route: 048
     Dates: start: 20050216, end: 20050730
  2. ADCAL-D3 [Concomitant]
  3. BENDROFLUMETHIAZIDE [Concomitant]
  4. VALSARTAN [Concomitant]

REACTIONS (1)
  - ISCHAEMIC STROKE [None]
